FAERS Safety Report 21097897 (Version 1)
Quarter: 2022Q3

REPORT INFORMATION
  Report Type: Spontaneous
  Country: DE (occurrence: DE)
  Receive Date: 20220719
  Receipt Date: 20220719
  Transmission Date: 20221027
  Serious: Yes (Other)
  Sender: FDA-Public Use
  Company Number: DE-BFARM-22004587

PATIENT
  Age: 121 Year
  Sex: Female
  Weight: 65 kg

DRUGS (8)
  1. OLANZAPINE [Suspect]
     Active Substance: OLANZAPINE
     Indication: Psychotic disorder
     Dosage: 7.5 MILLIGRAM, DAILY
     Route: 065
     Dates: start: 20210219, end: 20210311
  2. OLANZAPINE [Suspect]
     Active Substance: OLANZAPINE
     Dosage: 17.5 MILLIGRAM, DAILY
     Route: 065
     Dates: start: 20220204, end: 20220224
  3. OLANZAPINE [Suspect]
     Active Substance: OLANZAPINE
     Dosage: 10 MILLIGRAM, DAILY
     Route: 065
     Dates: start: 20201201, end: 20210218
  4. OLANZAPINE [Suspect]
     Active Substance: OLANZAPINE
     Dosage: 10 MILLIGRAM, DAILY
     Route: 065
     Dates: start: 20220408
  5. OLANZAPINE [Suspect]
     Active Substance: OLANZAPINE
     Dosage: 20 MILLIGRAM, DAILY
     Route: 065
     Dates: start: 20211021, end: 20220203
  6. OLANZAPINE [Suspect]
     Active Substance: OLANZAPINE
     Dosage: 12.5 MILLIGRAM, DAILY
     Route: 065
     Dates: start: 20220225, end: 20220407
  7. OLANZAPINE [Suspect]
     Active Substance: OLANZAPINE
     Dosage: 2.5 MILLIGRAM, DAILY
     Route: 065
     Dates: start: 20210513, end: 20210616
  8. OLANZAPINE [Suspect]
     Active Substance: OLANZAPINE
     Dosage: 5 MILLIGRAM, DAILY
     Route: 065
     Dates: start: 20210312, end: 20210512

REACTIONS (1)
  - Weight increased [Not Recovered/Not Resolved]

NARRATIVE: CASE EVENT DATE: 20210218
